FAERS Safety Report 8795775 (Version 3)
Quarter: 2012Q4

REPORT INFORMATION
  Report Type: 
  Country: JP (occurrence: JP)
  Receive Date: 20120919
  Receipt Date: 20121009
  Transmission Date: 20130627
  Serious: Yes (Other)
  Sender: FDA-Public Use
  Company Number: JP-PFIZER INC-2012224652

PATIENT
  Age: 39 Year
  Sex: Female

DRUGS (3)
  1. VIAGRA [Suspect]
     Indication: PULMONARY HYPERTENSION
     Dosage: 25 mg/day
     Route: 048
  2. BERAPROST SODIUM [Suspect]
     Dosage: UNK
     Route: 048
  3. WARFARIN [Suspect]
     Indication: PULMONARY HYPERTENSION
     Dosage: UNK
     Route: 048

REACTIONS (3)
  - Hepatic enzyme increased [Recovered/Resolved]
  - Drug ineffective [Unknown]
  - Off label use [Unknown]
